FAERS Safety Report 6690823-0 (Version None)
Quarter: 2010Q2

REPORT INFORMATION
  Report Type: 
  Country: None (occurrence: None)
  Receive Date: 20100421
  Receipt Date: 20100415
  Transmission Date: 20101027
  Serious: No
  Sender: FDA-Public Use
  Company Number: US-CEPHALON-2010002226

PATIENT
  Age: 49 Year
  Sex: Female

DRUGS (1)
  1. FENTORA [Suspect]
     Indication: CANCER PAIN
     Route: 002
     Dates: start: 20100101

REACTIONS (2)
  - DRUG INEFFECTIVE [None]
  - EXPIRED DRUG ADMINISTERED [None]
